FAERS Safety Report 6795172-8 (Version None)
Quarter: 2010Q2

REPORT INFORMATION
  Report Type: 
  Country: None (occurrence: None)
  Receive Date: 20100625
  Receipt Date: 20100618
  Transmission Date: 20101027
  Serious: Yes (Death, Hospitalization)
  Sender: FDA-Public Use
  Company Number: US-ROCHE-706821

PATIENT
  Age: 54 Year
  Sex: Male
  Weight: 82 kg

DRUGS (2)
  1. BLINDED BEVACIZUMAB [Suspect]
     Indication: GLIOBLASTOMA MULTIFORME
     Dosage: LAST ADMINISTERED DATE: 18 MAY 2010. TOTAL DOSE ADMINISTERED THIS COURSE: 785MG.
     Route: 042
     Dates: start: 20100308
  2. TEMOZOLOMIDE [Suspect]
     Indication: GLIOBLASTOMA
     Dosage: LAST ADMINISTERED DATE: 22 MAY 2010. TOTAL DOSE ADMINISTERED THIS COURSE: 6150MG.
     Route: 048
     Dates: start: 20100308

REACTIONS (3)
  - ATRIOVENTRICULAR BLOCK [None]
  - CONDUCTION DISORDER [None]
  - SUDDEN DEATH [None]
